FAERS Safety Report 20225077 (Version 1)
Quarter: 2021Q4

REPORT INFORMATION
  Report Type: Spontaneous
  Country: US (occurrence: US)
  Receive Date: 20211223
  Receipt Date: 20211223
  Transmission Date: 20220303
  Serious: No
  Sender: FDA-Public Use
  Company Number: US-JNJFOC-20211230580

PATIENT
  Age: 82 Year
  Sex: Male

DRUGS (2)
  1. DARZALEX [Suspect]
     Active Substance: DARATUMUMAB
     Indication: Product used for unknown indication
     Route: 065
  2. REVLIMID [Suspect]
     Active Substance: LENALIDOMIDE
     Indication: Plasma cell myeloma
     Route: 048
     Dates: start: 202110

REACTIONS (10)
  - Abdominal discomfort [Unknown]
  - Hiccups [Unknown]
  - Blister [Unknown]
  - Fatigue [Unknown]
  - Dyspnoea [Unknown]
  - Skin exfoliation [Unknown]
  - Gait disturbance [Unknown]
  - Muscular weakness [Unknown]
  - Pain [Unknown]
  - Rash [Unknown]
